FAERS Safety Report 10299358 (Version 1)
Quarter: 2014Q3

REPORT INFORMATION
  Report Type: Spontaneous
  Country: CA (occurrence: CA)
  Receive Date: 20140711
  Receipt Date: 20140711
  Transmission Date: 20150326
  Serious: Yes (Hospitalization)
  Sender: FDA-Public Use
  Company Number: CA-B.I. PHARMACEUTICALS,INC./RIDGEFIELD-2014-BI-31680CN

PATIENT
  Sex: Female

DRUGS (1)
  1. MICARDIS [Suspect]
     Active Substance: TELMISARTAN
     Indication: PRODUCT USED FOR UNKNOWN INDICATION
     Dosage: DOSE PER APPLICATION: 80(0.5 DOSAGE FORMS) MILLIGRAM
     Route: 065

REACTIONS (5)
  - Dyspnoea [Recovered/Resolved]
  - Sleep disorder [Recovered/Resolved]
  - Fluid retention [Recovered/Resolved]
  - Fatigue [Recovered/Resolved]
  - Adverse reaction [Recovered/Resolved]
